FAERS Safety Report 7580297-X (Version None)
Quarter: 2011Q2

REPORT INFORMATION
  Report Type: 
  Country: None (occurrence: None)
  Receive Date: 20110527
  Receipt Date: 20110127
  Transmission Date: 20111010
  Serious: Yes (Hospitalization, Other)
  Sender: FDA-Public Use
  Company Number: US200901001583

PATIENT
  Age: 65 Year
  Sex: Female
  Weight: 94.3 kg

DRUGS (29)
  1. LEVOXYL [Concomitant]
  2. PLAVIX [Concomitant]
  3. MIRALAX [Concomitant]
  4. FOLIC ACID [Concomitant]
  5. BYETTA [Suspect]
     Indication: TYPE 2 DIABETES MELLITUS
     Dosage: 5 UG, 2/D, SUBCUTANEOUS ; 10 UG, 2/D, SUBCUTANEOUS
     Route: 058
     Dates: start: 20071208, end: 20081219
  6. BYETTA [Suspect]
     Indication: TYPE 2 DIABETES MELLITUS
     Dosage: 5 UG, 2/D, SUBCUTANEOUS ; 10 UG, 2/D, SUBCUTANEOUS
     Route: 058
     Dates: start: 20070501, end: 20070626
  7. BYETTA [Suspect]
     Indication: TYPE 2 DIABETES MELLITUS
     Dosage: 5 UG, 2/D, SUBCUTANEOUS ; 10 UG, 2/D, SUBCUTANEOUS
     Route: 058
     Dates: start: 20070627, end: 20081218
  8. POTASSIUM CHLORIDE [Concomitant]
  9. FISH OIL (FISH OIL) [Concomitant]
  10. ZINC (ZINC) [Concomitant]
  11. METFORMIN HCL [Concomitant]
  12. TRIAMTERENE AND HYDROCHLOROTHIAZID (TRIAMTERENE AND HYDROCHLOROTHIAZID [Concomitant]
  13. ASPIRIN [Concomitant]
  14. CRESTOR [Concomitant]
  15. TYLENOL /SCH/ (PARACETAMOL) [Concomitant]
  16. EXENATIDE 10MCG PEN, DISPOSABLE DEVICE (EXENATIDE PEN (10MCG)) PEN,DIS [Concomitant]
  17. LISINOPRIL [Concomitant]
  18. VITAMIN E (HERBAL OIL NOS) [Concomitant]
  19. ESTER C /00968001/ (CALCIUM ASCORBATE) [Concomitant]
  20. VITAMIN B (VITAMIN-B-COMPLEX STANDARD) [Concomitant]
  21. EPINEPHRINE [Concomitant]
  22. SPIRONOLACTONE [Concomitant]
  23. GEMFIBROZIL [Concomitant]
  24. SELENIUM (SELENIUM) [Concomitant]
  25. CALCIUM CITRATE WITH VITAMIN D [Concomitant]
  26. CLONIDINE [Concomitant]
  27. ATENOLOL [Concomitant]
  28. LANTUS [Concomitant]
  29. MULTIPLE VITAMINS (ASCORBIC ACID, ERGOCALCIFEROL, FOLIC ACID, RETINOL, [Concomitant]

REACTIONS (4)
  - ALOPECIA [None]
  - PANCREATITIS ACUTE [None]
  - OFF LABEL USE [None]
  - WEIGHT DECREASED [None]
